FAERS Safety Report 5709799-5 (Version None)
Quarter: 2008Q2

REPORT INFORMATION
  Report Type: 
  Country: None (occurrence: None)
  Receive Date: 20080418
  Receipt Date: 20080409
  Transmission Date: 20081010
  Serious: Yes (Other)
  Sender: FDA-Public Use
  Company Number: US-JNJFOC-20080403300

PATIENT
  Age: 56 Year
  Sex: Female

DRUGS (3)
  1. TOPAMAX [Suspect]
     Indication: WEIGHT DECREASED
     Route: 048
  2. CLIMARA [Concomitant]
     Indication: HORMONE REPLACEMENT THERAPY
     Route: 062
  3. WELLBUTRIN XL [Concomitant]
     Route: 048

REACTIONS (4)
  - EYE MOVEMENT DISORDER [None]
  - INTRAOCULAR PRESSURE INCREASED [None]
  - NYSTAGMUS [None]
  - VISION BLURRED [None]
